FAERS Safety Report 25396864 (Version 3)
Quarter: 2025Q3

REPORT INFORMATION
  Report Type: Report from Study
  Country: US (occurrence: US)
  Receive Date: 20250604
  Receipt Date: 20250901
  Transmission Date: 20251021
  Serious: Yes (Other)
  Sender: TAKEDA
  Company Number: US-TAKEDA-2025TUS051609

PATIENT
  Sex: Female
  Weight: 61.224 kg

DRUGS (44)
  1. LANADELUMAB [Suspect]
     Active Substance: LANADELUMAB
     Indication: Immune system disorder
     Dosage: 300 MILLIGRAM, Q2WEEKS
  2. LANADELUMAB [Suspect]
     Active Substance: LANADELUMAB
  3. LANADELUMAB [Suspect]
     Active Substance: LANADELUMAB
  4. EPINEPHRINE [Concomitant]
     Active Substance: EPINEPHRINE
  5. CALCIUM [Concomitant]
     Active Substance: CALCIUM
  6. DRONABINOL [Concomitant]
     Active Substance: DRONABINOL
  7. FAMOTIDINE [Concomitant]
     Active Substance: FAMOTIDINE
  8. LIDOCAINE [Concomitant]
     Active Substance: LIDOCAINE
  9. DIETARY SUPPLEMENT\HERBALS\MILK THISTLE [Concomitant]
     Active Substance: MILK THISTLE
  10. TESTOSTERONE [Concomitant]
     Active Substance: TESTOSTERONE
  11. ALBUTEROL\IPRATROPIUM [Concomitant]
     Active Substance: ALBUTEROL\IPRATROPIUM
  12. KETOTIFEN FUMARATE [Concomitant]
     Active Substance: KETOTIFEN FUMARATE
  13. TYLENOL EXTRA STRENGTH [Concomitant]
     Active Substance: ACETAMINOPHEN
  14. CROMOLYN SODIUM [Concomitant]
     Active Substance: CROMOLYN SODIUM
  15. FLUCONAZOLE [Concomitant]
     Active Substance: FLUCONAZOLE
  16. MAGNESIUM [Concomitant]
     Active Substance: MAGNESIUM
  17. QULIPTA [Concomitant]
     Active Substance: ATOGEPANT
  18. HAEGARDA [Concomitant]
     Active Substance: HUMAN C1-ESTERASE INHIBITOR
  19. POTASSIUM [Concomitant]
     Active Substance: POTASSIUM
  20. ALBUTEROL SULFATE [Concomitant]
     Active Substance: ALBUTEROL SULFATE
  21. SUDAFED [Concomitant]
     Active Substance: PSEUDOEPHEDRINE HYDROCHLORIDE
  22. UNSPECIFIED INGREDIENT [Concomitant]
     Active Substance: UNSPECIFIED INGREDIENT
  23. DIAZEPAM [Concomitant]
     Active Substance: DIAZEPAM
  24. DICLOFENAC SODIUM [Concomitant]
     Active Substance: DICLOFENAC SODIUM
  25. EPIPEN [Concomitant]
     Active Substance: EPINEPHRINE
  26. NURTEC ODT [Concomitant]
     Active Substance: RIMEGEPANT SULFATE
  27. SYMBICORT [Concomitant]
     Active Substance: BUDESONIDE\FORMOTEROL FUMARATE DIHYDRATE
  28. VALACYCLOVIR HYDROCHLORIDE [Concomitant]
     Active Substance: VALACYCLOVIR HYDROCHLORIDE
  29. BUDESONIDE [Concomitant]
     Active Substance: BUDESONIDE
  30. DEXAMETHASONE [Concomitant]
     Active Substance: DEXAMETHASONE
  31. DUPIXENT [Concomitant]
     Active Substance: DUPILUMAB
  32. MONTELUKAST SODIUM [Concomitant]
     Active Substance: MONTELUKAST SODIUM
  33. OCTAGAM IMMUNE GLOBULIN (HUMAN) [Concomitant]
     Active Substance: HUMAN IMMUNOGLOBULIN G
  34. RUCONEST [Concomitant]
     Active Substance: CONESTAT ALFA
  35. CARAFATE [Concomitant]
     Active Substance: SUCRALFATE
  36. HYDROXYZINE HYDROCHLORIDE [Concomitant]
     Active Substance: HYDROXYZINE HYDROCHLORIDE
  37. LEUCOVORIN CALCIUM [Concomitant]
     Active Substance: LEUCOVORIN CALCIUM
  38. SPRIX [Concomitant]
     Active Substance: KETOROLAC TROMETHAMINE
  39. SAJAZIR [Concomitant]
     Active Substance: ICATIBANT ACETATE
  40. ACETAMINOPHEN [Concomitant]
     Active Substance: ACETAMINOPHEN
  41. AZITHROMYCIN [Concomitant]
     Active Substance: AZITHROMYCIN
  42. DIPHENHYDRAMINE HYDROCHLORIDE [Concomitant]
     Active Substance: DIPHENHYDRAMINE HYDROCHLORIDE
  43. HYDROMORPHONE HCL [Concomitant]
     Active Substance: HYDROMORPHONE HYDROCHLORIDE
  44. PROGESTERONE [Concomitant]
     Active Substance: PROGESTERONE

REACTIONS (5)
  - Brain oedema [Unknown]
  - Stress [Unknown]
  - Anxiety [Unknown]
  - Hereditary angioedema [Unknown]
  - Allergy to plants [Unknown]
